FAERS Safety Report 7301231-3 (Version None)
Quarter: 2011Q1

REPORT INFORMATION
  Report Type: 
  Country: None (occurrence: None)
  Receive Date: 20110112
  Receipt Date: 20090410
  Transmission Date: 20110831
  Serious: Yes (Hospitalization)
  Sender: FDA-Public Use
  Company Number: THYM-1001018

PATIENT
  Age: 4 Year
  Sex: Male

DRUGS (8)
  1. THYMOGLOBULIN [Suspect]
     Indication: KIDNEY TRANSPLANT REJECTION
     Dosage: INTRAVENOUS
     Route: 042
     Dates: start: 20090207, end: 20090208
  2. TYLENOL (PARACEMOL) [Concomitant]
  3. PREDNISONE TAB [Concomitant]
  4. TACROLIMUS [Concomitant]
  5. IMURAN [Concomitant]
  6. GANCICLOVIR [Concomitant]
  7. BACTRIM [Concomitant]
  8. BENADRYL [Concomitant]

REACTIONS (1)
  - KIDNEY TRANSPLANT REJECTION [None]
